FAERS Safety Report 18517772 (Version 1)
Quarter: 2020Q4

REPORT INFORMATION
  Report Type: Report from Study
  Country: US (occurrence: US)
  Receive Date: 20201118
  Receipt Date: 20201118
  Transmission Date: 20210114
  Serious: Yes (Hospitalization)
  Sender: FDA-Public Use
  Company Number: US-GILEAD-2020-0504568

PATIENT
  Age: 73 Year
  Sex: Male

DRUGS (2)
  1. ORENITRAM [Concomitant]
     Active Substance: TREPROSTINIL
     Indication: PULMONARY HYPERTENSION
     Dates: start: 20190608
  2. AMBRISENTAN [Suspect]
     Active Substance: AMBRISENTAN
     Indication: PULMONARY HYPERTENSION
     Dosage: 10 MG, QD
     Route: 065
     Dates: start: 20201017

REACTIONS (6)
  - Pleural effusion [Unknown]
  - Diarrhoea [Recovered/Resolved]
  - Intra-abdominal fluid collection [Unknown]
  - Hypotension [Unknown]
  - Oxygen saturation decreased [Unknown]
  - Haematochezia [Unknown]
